FAERS Safety Report 9739531 (Version 2)
Quarter: 2014Q2

REPORT INFORMATION
  Report Type: Spontaneous
  Country: NL (occurrence: NL)
  Receive Date: 20131209
  Receipt Date: 20140422
  Transmission Date: 20141212
  Serious: Yes (Other)
  Sender: FDA-Public Use
  Company Number: NL-TEVA-447832ISR

PATIENT
  Age: 6 Decade
  Sex: Male

DRUGS (8)
  1. GABAPENTIN [Suspect]
     Indication: DIABETIC FOOT
     Dosage: 900 MILLIGRAM DAILY; 12, 18 AND 24 HOURS
  2. GABAPENTIN [Interacting]
     Dosage: 900 MILLIGRAM DAILY; 9, 12 AND 18 HOURS
  3. OMEPRAZOLE [Suspect]
     Dosage: 20 MILLIGRAM DAILY;
  4. INSULIN [Interacting]
     Indication: TYPE 1 DIABETES MELLITUS
  5. INSULIN SUSPENSION ISOPHANE [Interacting]
     Indication: TYPE 1 DIABETES MELLITUS
  6. PREDNISOLONE [Concomitant]
     Route: 031
  7. NEOMYCIN, POLYMIXIN B, GRAMICIDIN [Concomitant]
     Route: 031
  8. ALFUZOSIN [Concomitant]

REACTIONS (5)
  - Hypoglycaemia [Recovered/Resolved]
  - Drug interaction [Unknown]
  - Tremor [Unknown]
  - Loss of consciousness [Unknown]
  - Coma [Unknown]
